FAERS Safety Report 22060868 (Version 2)
Quarter: 2023Q1

REPORT INFORMATION
  Report Type: Spontaneous
  Country: CN (occurrence: None)
  Receive Date: 20230303
  Receipt Date: 20230321
  Transmission Date: 20230418
  Serious: Yes (Other)
  Sender: FDA-Public Use
  Company Number: 2023A036542

PATIENT
  Age: 50 Year
  Sex: Female
  Weight: 65 kg

DRUGS (3)
  1. IMFINZI [Suspect]
     Active Substance: DURVALUMAB
     Indication: Small cell lung cancer
     Dosage: FOR 5 CYCLES, LAST DOSE OF MEDICATION WAS 1000MG/PERIOD. 1000.0MG EVERY CYCLE
     Route: 042
     Dates: start: 20220629, end: 20220629
  2. ETOPOSIDE [Concomitant]
     Active Substance: ETOPOSIDE
     Dosage: FIRST-LINE THERAPY
  3. CARBOPLATIN [Concomitant]
     Active Substance: CARBOPLATIN
     Dosage: FIRST-LINE THERAPY

REACTIONS (3)
  - COVID-19 pneumonia [Not Recovered/Not Resolved]
  - Small cell lung cancer recurrent [Unknown]
  - Thyroid function test normal [Recovered/Resolved]

NARRATIVE: CASE EVENT DATE: 20221201
